FAERS Safety Report 4724871-4 (Version None)
Quarter: 2005Q3

REPORT INFORMATION
  Report Type: 
  Country: None (occurrence: None)
  Receive Date: 20050720
  Receipt Date: 20050720
  Transmission Date: 20060218
  Serious: Yes (Hospitalization)
  Sender: FDA-Public Use
  Company Number: None

PATIENT
  Age: 53 Year
  Sex: Female

DRUGS (18)
  1. MS CONTIN [Suspect]
     Indication: DRUG DEPENDENCE
     Dosage: 30MG PO Q12H
     Route: 048
     Dates: start: 20041001, end: 20050403
  2. MS CONTIN [Suspect]
     Indication: HEADACHE
     Dosage: 30MG PO Q12H
     Route: 048
     Dates: start: 20041001, end: 20050403
  3. CLONAZEPAM [Suspect]
     Dosage: 1MG PO BID AND 2 QHS
     Route: 048
     Dates: start: 20010529, end: 20050719
  4. ACETAMINOPHEN [Concomitant]
  5. CODEINE [Concomitant]
  6. CITALOPRAM HYDROBROMIDE [Concomitant]
  7. CLONAZEPAM [Concomitant]
  8. DIPHENHYDRAMINE HCL [Concomitant]
  9. GABAPENTIN [Concomitant]
  10. HYDROXYZINE PAMOATE [Concomitant]
  11. SYNTHROID [Concomitant]
  12. MORPHINE SO4 [Concomitant]
  13. SA [Concomitant]
  14. OMEPRAZOLE [Concomitant]
  15. OXYCODONE HCL [Concomitant]
  16. ACETAMINOPHEN [Concomitant]
  17. RISPERIDONE [Concomitant]
  18. TOPIRAMATE [Concomitant]

REACTIONS (1)
  - SOMNOLENCE [None]
